FAERS Safety Report 9521317 (Version 2)
Quarter: 2014Q1

REPORT INFORMATION
  Report Type: Spontaneous
  Country: US (occurrence: None)
  Receive Date: 20130305
  Receipt Date: 20140306
  Transmission Date: 20141002
  Serious: Yes (Disabling)
  Sender: FDA-Public Use
  Company Number: 163-21880-12072074

PATIENT
  Age: 76 Year
  Sex: Male
  Weight: 61.24 kg

DRUGS (14)
  1. REVLIMID (LENALIDOMIDE) (25 MILLIGRAM, CAPSULES) [Suspect]
     Indication: PLASMA CELL MYELOMA
     Dosage: 25 MG, 1 IN 1 D, PO
     Route: 048
     Dates: start: 20090818
  2. ALEVE (NAPROXEN SODIUM) (UNKNOWN) [Concomitant]
  3. DEXAMETHASONE (DEXAMETHASONE) (UNKNOWN) [Concomitant]
  4. FISH OIL (FISH OIL) (UNKNOWN) [Concomitant]
  5. METHADONE HCL (METHADONE HYDROCHLORIDE) (UNKNOWN) [Concomitant]
  6. GABAPENTIN (GABAPENTIN) (UNKNOWN) (GABAPENTIN) [Concomitant]
  7. HYDROCHLORTHIAZIDE (HYDROCHLOROTHIAZIDE) (UNKNOWN) [Concomitant]
  8. MULTIVITAMINS (MULTIVITAMINS) (TABLETS) [Concomitant]
  9. VIAGRA (SILDENAFIL CITRATE) (TABLETS) [Concomitant]
  10. OMEPRAZOLE (OMEPRAZOLE) (CAPSULES) [Concomitant]
  11. VITAMIN B1 (THIAMINE HYDROCHLORIDE) (TABLETS) [Concomitant]
  12. VITAMIN C (ASCORBIC ACID) (TABLETS) [Concomitant]
  13. VITAMIN D (ERGOCALCIFEROL) (UNKNOWN) [Concomitant]
  14. VITAMIN E (TOCOPHEROL) (UNKNOWN) [Concomitant]

REACTIONS (3)
  - Local swelling [None]
  - Nasopharyngitis [None]
  - Burning sensation [None]
